FAERS Safety Report 7544041-4 (Version None)
Quarter: 2011Q2

REPORT INFORMATION
  Report Type: 
  Country: None (occurrence: None)
  Receive Date: 20110613
  Receipt Date: 20050929
  Transmission Date: 20111010
  Serious: Yes (Hospitalization, Other)
  Sender: FDA-Public Use
  Company Number: PHHO2005CA15499

PATIENT
  Sex: Female

DRUGS (5)
  1. PERCOCET [Concomitant]
  2. ZOMETA [Suspect]
     Indication: BREAST CANCER
     Dosage: 4 MG, QMO
     Route: 042
     Dates: start: 20050615
  3. BONEFOS [Concomitant]
  4. OXYCONTIN [Concomitant]
  5. ARIMIDEX [Concomitant]

REACTIONS (2)
  - DEPRESSED MOOD [None]
  - PAIN [None]
